FAERS Safety Report 13024006 (Version 1)
Quarter: 2016Q4

REPORT INFORMATION
  Report Type: Report from Study
  Country: ES (occurrence: ES)
  Receive Date: 20161213
  Receipt Date: 20161213
  Transmission Date: 20170207
  Serious: Yes (Hospitalization)
  Sender: FDA-Public Use
  Company Number: ES-PFIZER INC-2016576498

PATIENT
  Age: 86 Year
  Sex: Male

DRUGS (3)
  1. ALDACTONE [Suspect]
     Active Substance: SPIRONOLACTONE
     Route: 065
     Dates: start: 2016, end: 201607
  2. OMEPRAZOLE. [Interacting]
     Active Substance: OMEPRAZOLE
     Route: 065
     Dates: start: 2016
  3. SINTROM [Interacting]
     Active Substance: ACENOCOUMAROL
     Indication: ATRIAL FIBRILLATION
     Dosage: ACCORDING TO INR
     Route: 048
     Dates: start: 2016, end: 20160715

REACTIONS (2)
  - Drug interaction [Recovering/Resolving]
  - Cerebral haematoma [Recovering/Resolving]

NARRATIVE: CASE EVENT DATE: 20160715
